FAERS Safety Report 23749800 (Version 2)
Quarter: 2024Q2

REPORT INFORMATION
  Report Type: Report from Study
  Country: US (occurrence: US)
  Receive Date: 20240417
  Receipt Date: 20240506
  Transmission Date: 20240715
  Serious: Yes (Hospitalization)
  Sender: FDA-Public Use
  Company Number: US-BoehringerIngelheim-2024-BI-022114

PATIENT
  Age: 76 Year
  Sex: Female

DRUGS (1)
  1. OFEV [Suspect]
     Active Substance: NINTEDANIB
     Indication: Idiopathic pulmonary fibrosis
     Route: 048

REACTIONS (4)
  - Intestinal obstruction [Recovering/Resolving]
  - Asthenia [Recovering/Resolving]
  - Abdominal pain upper [Not Recovered/Not Resolved]
  - Post procedural complication [Unknown]
